FAERS Safety Report 10398123 (Version 1)
Quarter: 2014Q3

REPORT INFORMATION
  Report Type: Spontaneous
  Country: US (occurrence: None)
  Receive Date: 20140818
  Receipt Date: 20140818
  Transmission Date: 20150326
  Serious: Yes (Hospitalization)
  Sender: FDA-Public Use
  Company Number: None

PATIENT
  Age: 50 Year
  Sex: Male
  Weight: 115.4 kg

DRUGS (1)
  1. EVEROLIMUS [Suspect]
     Active Substance: EVEROLIMUS
     Dates: end: 20140803

REACTIONS (4)
  - Vomiting [None]
  - Hypophagia [None]
  - Hypophosphataemia [None]
  - Diarrhoea [None]

NARRATIVE: CASE EVENT DATE: 20140805
